FAERS Safety Report 7914774-6 (Version None)
Quarter: 2011Q4

REPORT INFORMATION
  Report Type: 
  Country: None (occurrence: None)
  Receive Date: 20111115
  Receipt Date: 20111110
  Transmission Date: 20120403
  Serious: Yes (Other)
  Sender: FDA-Public Use
  Company Number: PHHY2011JP099673

PATIENT
  Age: 64 Year
  Sex: Male

DRUGS (1)
  1. EXJADE [Suspect]
     Dosage: UNK
     Route: 048

REACTIONS (3)
  - ENTEROCOLITIS [None]
  - DIARRHOEA [None]
  - APHAGIA [None]
